FAERS Safety Report 7818529 (Version 6)
Quarter: 2013Q2

REPORT INFORMATION
  Report Type: Spontaneous
  Country: US (occurrence: None)
  Receive Date: 20110127
  Receipt Date: 20130419
  Transmission Date: 20140414
  Serious: Yes (Hospitalization, Other)
  Sender: FDA-Public Use
  Company Number: CIP11000122

PATIENT
  Age: 64 Year
  Sex: Female

DRUGS (16)
  1. ACTONEL [Suspect]
     Dosage: ORAL
     Route: 048
     Dates: start: 200508, end: 200608
  2. BONIVA [Suspect]
     Indication: OSTEOPOROSIS
     Dosage: 150 MG ONCE MONTHLY, ORAL
     Route: 048
     Dates: start: 20060829
  3. FOSAMAX [Suspect]
     Dosage: 70 MG ONCE WEEKLY, ORAL
     Route: 048
     Dates: start: 20040226, end: 20050804
  4. FORTEO [Concomitant]
  5. ADIPEX-P [Concomitant]
  6. ULTRAM [Concomitant]
  7. BYETTA [Concomitant]
  8. LYRICA [Concomitant]
  9. LANTUS [Concomitant]
  10. LASIX [Concomitant]
  11. PROZAC [Concomitant]
  12. PLAVIX [Concomitant]
  13. ASPIRIN [Concomitant]
  14. LORTAB  /00607101/ (HYDROCODONE BITARTRATE, PARACETAMOL) [Concomitant]
  15. ZYRTEC (CETIRIZINE HYDROCHLORIDE) [Concomitant]
  16. NOVOLOG (INSULIN ASPART) [Concomitant]

REACTIONS (17)
  - FEMUR FRACTURE [None]
  - Fracture nonunion [None]
  - FALL [None]
  - DEVICE BREAKAGE [None]
  - PAIN IN EXTREMITY [None]
  - ARTHRALGIA [None]
  - Comminuted fracture [None]
  - Periprosthetic fracture [None]
  - LOW TURNOVER OSTEOPATHY [None]
  - BONE DISORDER [None]
  - Stress fracture [None]
  - GAIT DISTURBANCE [None]
  - CELLULITIS [None]
  - Pain [None]
  - Bursitis [None]
  - Leg amputation [None]
  - Infection [None]
